FAERS Safety Report 18505283 (Version 11)
Quarter: 2022Q2

REPORT INFORMATION
  Report Type: Spontaneous
  Country: JP (occurrence: JP)
  Receive Date: 20201116
  Receipt Date: 20220523
  Transmission Date: 20220720
  Serious: Yes (Other)
  Sender: FDA-Public Use
  Company Number: JP-BIOVITRUM-2020JP5598

PATIENT
  Age: 0 Year
  Sex: Male
  Weight: 5 kg

DRUGS (21)
  1. NITISINONE [Suspect]
     Active Substance: NITISINONE
     Indication: Tyrosinaemia
     Route: 050
     Dates: start: 20200917, end: 20201006
  2. NITISINONE [Suspect]
     Active Substance: NITISINONE
     Route: 050
     Dates: start: 20201007, end: 20201019
  3. NITISINONE [Suspect]
     Active Substance: NITISINONE
     Route: 050
     Dates: start: 20201020, end: 20201110
  4. NITISINONE [Suspect]
     Active Substance: NITISINONE
     Route: 050
     Dates: start: 20201119, end: 20201201
  5. SOYBEAN OIL [Concomitant]
     Active Substance: SOYBEAN OIL
  6. NAFAMOSTAT [Concomitant]
     Active Substance: NAFAMOSTAT
  7. MIDAZOLAM [Concomitant]
     Active Substance: MIDAZOLAM
  8. LEVOCARNITINE [Concomitant]
     Active Substance: LEVOCARNITINE
  9. ARGININE [Concomitant]
     Active Substance: ARGININE
  10. MOSAPRIDE CITRATE [Concomitant]
     Active Substance: MOSAPRIDE CITRATE
  11. LACTULOSE [Concomitant]
     Active Substance: LACTULOSE
  12. URALYT U [Concomitant]
     Route: 048
  13. ALFAROL [Concomitant]
     Active Substance: ALFACALCIDOL
     Route: 048
  14. URSODIOL [Concomitant]
     Active Substance: URSODIOL
  15. OMEPRAZOLE [Concomitant]
     Active Substance: OMEPRAZOLE
  16. SODIUM BENZOATE [Concomitant]
     Active Substance: SODIUM BENZOATE
  17. VOLVIX [Concomitant]
  18. CELLCEPT [Concomitant]
     Active Substance: MYCOPHENOLATE MOFETIL
     Route: 048
     Dates: start: 20200927
  19. PROGRAF [Concomitant]
     Active Substance: TACROLIMUS
     Dosage: CAPSULE
     Dates: start: 20200924
  20. PREDNISOLONE [Concomitant]
     Active Substance: PREDNISOLONE
     Route: 048
     Dates: start: 20201002, end: 20210212
  21. FENTANYL [Concomitant]
     Active Substance: FENTANYL

REACTIONS (9)
  - Liver transplant [Recovered/Resolved]
  - Hepatic failure [Unknown]
  - Hypothyroidism [Not Recovered/Not Resolved]
  - Hepatocellular carcinoma [Unknown]
  - Amino acid level increased [Recovered/Resolved]
  - Focal nodular hyperplasia [Unknown]
  - Off label use [Recovered/Resolved]
  - Product use issue [Recovered/Resolved]
  - Wrong technique in product usage process [Recovered/Resolved]

NARRATIVE: CASE EVENT DATE: 20200917
